FAERS Safety Report 8197694 (Version 2)
Quarter: 2012Q4

REPORT INFORMATION
  Report Type: 
  Country: US (occurrence: US)
  Receive Date: 20111025
  Receipt Date: 20121121
  Transmission Date: 20130627
  Serious: Yes (Other)
  Sender: FDA-Public Use
  Company Number: US-ELI_LILLY_AND_COMPANY-US201110004576

PATIENT
  Sex: Female

DRUGS (12)
  1. BYETTA [Suspect]
     Indication: TYPE 2 DIABETES MELLITUS
     Dosage: UNK UNK, unknown
     Route: 058
     Dates: start: 200809, end: 200911
  2. GLIPIZIDE [Concomitant]
     Indication: TYPE 2 DIABETES MELLITUS
  3. LEXAPRO [Concomitant]
     Indication: DEPRESSION
     Dosage: 10 mg, qd
  4. LEXAPRO [Concomitant]
     Dosage: 20 mg, qd
     Dates: end: 20090804
  5. OMEPRAZOLE [Concomitant]
     Indication: GASTROOESOPHAGEAL REFLUX DISEASE
  6. ALBUTEROL [Concomitant]
     Indication: ASTHMA
     Dosage: UNK, prn
  7. SYNTHROID [Concomitant]
     Indication: HYPOTHYROIDISM
     Dosage: 137 ug, qd
     Dates: start: 20081013
  8. LIPITOR [Concomitant]
     Indication: DYSLIPIDAEMIA
     Dosage: 40 mg, qd
  9. PROVIGIL [Concomitant]
     Dosage: 100 mg, qd
  10. FUROSEMIDE [Concomitant]
     Dosage: 40 mg, qd
     Dates: start: 20081208
  11. AMLODIPINE [Concomitant]
     Indication: HYPERTENSION
     Dosage: 5 mg, qd
     Dates: start: 20081105
  12. SIMVASTATIN [Concomitant]
     Dosage: 40 mg, qd
     Dates: start: 20080930

REACTIONS (3)
  - Renal failure [Unknown]
  - Renal failure chronic [Not Recovered/Not Resolved]
  - Pancreatitis acute [Unknown]
